FAERS Safety Report 23211435 (Version 6)
Quarter: 2025Q3

REPORT INFORMATION
  Report Type: Report from Study
  Country: US (occurrence: US)
  Receive Date: 20231121
  Receipt Date: 20250822
  Transmission Date: 20251021
  Serious: Yes (Hospitalization, Other)
  Sender: TAKEDA
  Company Number: US-TAKEDA-2023TUS021626

PATIENT
  Age: 43 Year
  Sex: Female
  Weight: 66 kg

DRUGS (13)
  1. BRIGATINIB [Suspect]
     Active Substance: BRIGATINIB
     Indication: Neurofibromatosis
     Dosage: 90 MILLIGRAM, QD
     Dates: start: 20250218
  2. BRIGATINIB [Suspect]
     Active Substance: BRIGATINIB
     Indication: Meningioma
     Dosage: 90 MILLIGRAM, QD
     Dates: start: 20230228
  3. BRIGATINIB [Suspect]
     Active Substance: BRIGATINIB
     Indication: Endocrine neoplasm malignant
     Dosage: 180 MILLIGRAM, QD
     Dates: start: 20230326
  4. BRIGATINIB [Suspect]
     Active Substance: BRIGATINIB
     Dosage: 180 MILLIGRAM, QD
  5. BRIGATINIB [Suspect]
     Active Substance: BRIGATINIB
  6. BRIGATINIB [Suspect]
     Active Substance: BRIGATINIB
     Dosage: 90 MILLIGRAM, QD
  7. BRIGATINIB [Suspect]
     Active Substance: BRIGATINIB
  8. BRIGATINIB [Suspect]
     Active Substance: BRIGATINIB
     Dosage: 90 MILLIGRAM, QD
  9. BUSPAR [Concomitant]
     Active Substance: BUSPIRONE HYDROCHLORIDE
  10. WELLBUTRIN [Concomitant]
     Active Substance: BUPROPION HYDROCHLORIDE
  11. IRON [Concomitant]
     Active Substance: IRON
  12. OMEPRAZOLE [Concomitant]
     Active Substance: OMEPRAZOLE
  13. IMODIUM [Concomitant]
     Active Substance: LOPERAMIDE HYDROCHLORIDE

REACTIONS (5)
  - Brain neoplasm [Unknown]
  - Cough [Recovered/Resolved]
  - Chest discomfort [Recovered/Resolved]
  - Drug ineffective [Unknown]
  - Off label use [Unknown]

NARRATIVE: CASE EVENT DATE: 20230313
